FAERS Safety Report 9543970 (Version 1)
Quarter: 2013Q2

REPORT INFORMATION
  Report Type: Spontaneous
  Country: US (occurrence: None)
  Receive Date: 20130524
  Receipt Date: 20130524
  Transmission Date: 20140414
  Serious: Yes (Other)
  Sender: FDA-Public Use
  Company Number: PHEH2012US024829

PATIENT
  Age: 28 Year
  Sex: Female

DRUGS (6)
  1. GILENYA (FINGOLIMOD) CAPSULE, 0.5MG [Suspect]
     Indication: MULTIPLE SCLEROSIS
     Route: 048
     Dates: start: 20121214
  2. NUVIGIL (ARMODAFINIL) [Concomitant]
  3. FLUOXETINE [Concomitant]
  4. NORCO (HYDROCODONE BITARTRATE, PARACETAMOL) [Concomitant]
  5. BUTALBITAL [Concomitant]
  6. AUGMENTIN (AMOXICILLIN SODIUM, CLAVULANATE POTASSIUM) [Concomitant]

REACTIONS (2)
  - Lethargy [None]
  - Somnolence [None]
